FAERS Safety Report 8219658-4 (Version None)
Quarter: 2012Q1

REPORT INFORMATION
  Report Type: 
  Country: None (occurrence: None)
  Receive Date: 20120319
  Receipt Date: 20120306
  Transmission Date: 20120608
  Serious: Yes (Death)
  Sender: FDA-Public Use
  Company Number: IL-ASTRAZENECA-2012SE17473

PATIENT
  Age: 54 Year
  Sex: Male

DRUGS (6)
  1. FLUDARABINE PHOSPHATE [Concomitant]
  2. NEUPOGEN [Concomitant]
     Indication: ANAL ABSCESS
  3. GANCICLOVIR [Concomitant]
  4. MELPHALAN HYDROCHLORIDE [Concomitant]
  5. FOSCARNET [Suspect]
     Indication: CYTOMEGALOVIRUS INFECTION
     Route: 042
  6. THIOTEPA [Concomitant]

REACTIONS (1)
  - DEATH [None]
